FAERS Safety Report 8622490-0 (Version None)
Quarter: 2012Q3

REPORT INFORMATION
  Report Type: 
  Country: None (occurrence: None)
  Receive Date: 20120827
  Receipt Date: 20120821
  Transmission Date: 20120928
  Serious: No
  Sender: FDA-Public Use
  Company Number: US-PFIZER INC-2012205807

PATIENT
  Age: 58 Year
  Sex: Female

DRUGS (4)
  1. XALKORI [Suspect]
     Dosage: 250 MG, 1X/DAY
     Route: 048
     Dates: start: 20120511
  2. XALKORI [Suspect]
     Dosage: 250 MG, 2X/DAY
     Route: 048
     Dates: end: 20120502
  3. XALKORI [Suspect]
     Dosage: 250 MG, 2 PILLS ONE DAY ALTERNATING WITH ONE PILL PER DAY
     Route: 048
     Dates: start: 20120604, end: 20120619
  4. XALKORI [Suspect]
     Dosage: 250 MG, 2X/DAY
     Route: 048
     Dates: start: 20120619

REACTIONS (3)
  - VISUAL IMPAIRMENT [None]
  - OEDEMA PERIPHERAL [None]
  - PARAESTHESIA [None]
